FAERS Safety Report 4849615-7 (Version None)
Quarter: 2005Q4

REPORT INFORMATION
  Report Type: 
  Country: None (occurrence: None)
  Receive Date: 20051115
  Receipt Date: 20050808
  Transmission Date: 20060501
  Serious: No
  Sender: FDA-Public Use
  Company Number: S05-USA-03976-01

PATIENT
  Age: 44 Year
  Sex: Female

DRUGS (14)
  1. NAMENDA [Suspect]
     Indication: MULTIPLE SCLEROSIS
     Dosage: 5 MG QD PO
     Route: 048
     Dates: start: 20050711, end: 20050731
  2. NAMENDA [Suspect]
     Indication: MULTIPLE SCLEROSIS
     Dosage: 5 MG BID PO
     Route: 048
     Dates: start: 20050801, end: 20050801
  3. NAMENDA [Suspect]
     Indication: MULTIPLE SCLEROSIS
     Dosage: 15 MG QD PO
     Route: 048
     Dates: start: 20050801, end: 20050808
  4. EFFEXOR [Concomitant]
  5. LEVOTHYROXINE SODIUM [Concomitant]
  6. OXYBUTYNIN [Concomitant]
  7. LAMICTAL [Concomitant]
  8. COPAXONE [Concomitant]
  9. BROMOCRIPTINE MESYLATE [Concomitant]
  10. NEXIUM [Concomitant]
  11. ZANTAC [Concomitant]
  12. CLONAZEPAM [Concomitant]
  13. ALBUTEROL [Concomitant]
  14. NAPROXEN [Concomitant]

REACTIONS (5)
  - DIZZINESS [None]
  - JOINT SWELLING [None]
  - OEDEMA PERIPHERAL [None]
  - PRURITUS [None]
  - RASH [None]
